FAERS Safety Report 17553442 (Version 1)
Quarter: 2020Q1

REPORT INFORMATION
  Report Type: Spontaneous
  Country: PL (occurrence: PL)
  Receive Date: 20200318
  Receipt Date: 20200318
  Transmission Date: 20200409
  Serious: Yes (Other)
  Sender: FDA-Public Use
  Company Number: PL-TEVA-2020-PL-1205443

PATIENT
  Age: 61 Year
  Sex: Male

DRUGS (10)
  1. MORPHINE [Suspect]
     Active Substance: MORPHINE
     Dosage: UP TO 4 TIMES A DAY
     Route: 065
  2. KETOPROFEN. [Concomitant]
     Active Substance: KETOPROFEN
     Dosage: 200 MILLIGRAM DAILY;
  3. FENTANYL. [Suspect]
     Active Substance: FENTANYL
     Dosage: 1200 MICROGRAM DAILY; EVERY 3 DAYS
     Route: 062
  4. GABAPENTIN. [Concomitant]
     Active Substance: GABAPENTIN
     Dosage: 900 MILLIGRAM DAILY;
  5. FENTANYL. [Suspect]
     Active Substance: FENTANYL
     Dosage: 3-4 TIMES DAILY
     Route: 002
  6. TAPENTADOL [Concomitant]
     Active Substance: TAPENTADOL
     Dosage: 100 MILLIGRAM DAILY;
  7. DOCETAXEL. [Suspect]
     Active Substance: DOCETAXEL
     Dosage: 8 OUT OF 10 PLANNED CYCLES WERE ADMINISTERED
     Route: 065
  8. FENTANYL. [Suspect]
     Active Substance: FENTANYL
     Dosage: 4800 MICROGRAM DAILY; EVERY 3 DAYS
     Route: 062
  9. FENTANYL. [Suspect]
     Active Substance: FENTANYL
     Dosage: 3-4 TIMES DAILY
     Route: 002
  10. GABAPENTIN. [Concomitant]
     Active Substance: GABAPENTIN
     Dosage: 150 MILLIGRAM DAILY;

REACTIONS (6)
  - Confusional state [Recovered/Resolved]
  - Drug dependence [Unknown]
  - Constipation [Unknown]
  - Polyneuropathy in malignant disease [Unknown]
  - Hyperaesthesia [Unknown]
  - Decreased appetite [Unknown]

NARRATIVE: CASE EVENT DATE: 2016
